FAERS Safety Report 11701720 (Version 2)
Quarter: 2015Q4

REPORT INFORMATION
  Report Type: Report from Study
  Country: JP (occurrence: JP)
  Receive Date: 20151105
  Receipt Date: 20151125
  Transmission Date: 20160304
  Serious: Yes (Other)
  Sender: FDA-Public Use
  Company Number: JP-MYLANLABS-2015M1038464

PATIENT

DRUGS (4)
  1. SULTANOL [Concomitant]
     Active Substance: ALBUTEROL SULFATE
     Indication: COUGH
     Dosage: UNK
     Dates: start: 20151026
  2. ALESION [Concomitant]
     Active Substance: EPINASTINE HYDROCHLORIDE
     Indication: PRURITUS
     Dosage: 12 MG, TOTAL
     Route: 048
     Dates: start: 20151026, end: 20151026
  3. PREDONINE [Concomitant]
     Active Substance: PREDNISOLONE\PREDNISOLONE ACETATE\PREDNISOLONE SODIUM SUCCINATE
     Indication: COUGH
     Dosage: UNK
     Dates: start: 20151026, end: 2015
  4. EPIPEN [Suspect]
     Active Substance: EPINEPHRINE
     Indication: IMMUNISATION REACTION
     Dosage: 0.15 MG, SINGLE
     Route: 030
     Dates: start: 20151026, end: 2015

REACTIONS (3)
  - Injection site laceration [Recovering/Resolving]
  - Wrong technique in product usage process [Recovering/Resolving]
  - Product quality issue [Recovering/Resolving]

NARRATIVE: CASE EVENT DATE: 20151026
